FAERS Safety Report 5324444-9 (Version None)
Quarter: 2007Q2

REPORT INFORMATION
  Report Type: 
  Country: None (occurrence: None)
  Receive Date: 20070508
  Receipt Date: 20070424
  Transmission Date: 20071010
  Serious: Yes (Life-Threatening)
  Sender: FDA-Public Use
  Company Number: 2007P1000211

PATIENT
  Age: 23 Year
  Sex: Male

DRUGS (4)
  1. BUSULFAN (BUSULFAN) [Suspect]
     Indication: STEM CELL TRANSPLANT
     Dosage: 9.4 ML; QID; IV
     Route: 042
     Dates: start: 20070125, end: 20070128
  2. VALPROATE SODIUM [Concomitant]
  3. FLUDARABINE PHOSPHATE [Concomitant]
  4. CYCLOPHOSPHAMIDE [Concomitant]

REACTIONS (17)
  - ACUTE GRAFT VERSUS HOST DISEASE [None]
  - CONTINUOUS HAEMODIAFILTRATION [None]
  - CONVULSION [None]
  - DIARRHOEA [None]
  - ENCEPHALITIS VIRAL [None]
  - ENGRAFTMENT SYNDROME [None]
  - HAEMORRHAGE [None]
  - HUMAN HERPESVIRUS 6 INFECTION [None]
  - LIVER DISORDER [None]
  - MALAISE [None]
  - MELAENA [None]
  - RASH [None]
  - RENAL FAILURE ACUTE [None]
  - STAPHYLOCOCCAL SCALDED SKIN SYNDROME [None]
  - STAPHYLOCOCCAL SEPSIS [None]
  - STOMATITIS [None]
  - THROMBOTIC MICROANGIOPATHY [None]
